FAERS Safety Report 11429020 (Version 1)
Quarter: 2015Q3

REPORT INFORMATION
  Report Type: Spontaneous
  Country: US (occurrence: US)
  Receive Date: 20150828
  Receipt Date: 20150828
  Transmission Date: 20151125
  Serious: No
  Sender: FDA-Public Use
  Company Number: US-ROCHE-1200091

PATIENT
  Sex: Female

DRUGS (6)
  1. RIBASPHERE [Suspect]
     Active Substance: RIBAVIRIN
     Indication: CHRONIC HEPATITIS C
     Dosage: 400-600 DIVIDED DOSES DAILY
     Route: 048
     Dates: start: 20130221
  2. NEXIUM [Concomitant]
     Active Substance: ESOMEPRAZOLE MAGNESIUM
  3. CHANTIX [Concomitant]
     Active Substance: VARENICLINE TARTRATE
  4. TELAPREVIR [Suspect]
     Active Substance: TELAPREVIR
     Indication: CHRONIC HEPATITIS C
     Route: 065
     Dates: start: 20130221, end: 2013
  5. ACETAMINOPHEN. [Concomitant]
     Active Substance: ACETAMINOPHEN
  6. PEGASYS [Suspect]
     Active Substance: PEGINTERFERON ALFA-2A
     Indication: CHRONIC HEPATITIS C
     Route: 058
     Dates: start: 20130221

REACTIONS (10)
  - Dry skin [Recovered/Resolved]
  - Pyrexia [Unknown]
  - Blood pressure increased [Unknown]
  - Drug dose omission [Unknown]
  - Candida infection [Unknown]
  - Gastritis [Unknown]
  - Anxiety [Unknown]
  - Weight increased [Unknown]
  - Cough [Unknown]
  - Pain [Unknown]
